FAERS Safety Report 5097210-X (Version None)
Quarter: 2006Q3

REPORT INFORMATION
  Report Type: 
  Country: None (occurrence: None)
  Receive Date: 20060906
  Receipt Date: 20060713
  Transmission Date: 20061208
  Serious: Yes (Life-Threatening, Hospitalization)
  Sender: FDA-Public Use
  Company Number: JP-ROCHE-455404

PATIENT
  Age: 67 Year
  Sex: Male

DRUGS (6)
  1. PANALDINE [Suspect]
     Indication: THROMBOSIS PROPHYLAXIS
     Dosage: ADDITIONAL INDICATIONS STENT PLACEMENT AND ACUTE MYOCARDIAL INFARCTION.
     Route: 048
     Dates: start: 20060528, end: 20060702
  2. BASEN [Concomitant]
     Indication: DIABETES MELLITUS
     Route: 048
     Dates: start: 20060601, end: 20060703
  3. MEVALOTIN [Concomitant]
     Indication: HYPERLIPIDAEMIA
     Route: 048
     Dates: start: 20060608, end: 20060703
  4. SPIRIVA [Concomitant]
     Route: 055
     Dates: start: 20060607
  5. FLUTIDE [Concomitant]
     Route: 055
     Dates: start: 20060607
  6. HARNAL [Concomitant]

REACTIONS (3)
  - CEREBELLAR INFARCTION [None]
  - JAUNDICE [None]
  - THROMBOTIC THROMBOCYTOPENIC PURPURA [None]
